FAERS Safety Report 11518719 (Version 1)
Quarter: 2015Q3

REPORT INFORMATION
  Report Type: Spontaneous
  Country: FR (occurrence: FR)
  Receive Date: 20150917
  Receipt Date: 20150917
  Transmission Date: 20151125
  Serious: Yes (Congenital Anomaly, Other)
  Sender: FDA-Public Use
  Company Number: FR-ABBVIE-15P-056-1464732-00

PATIENT
  Sex: Female
  Weight: 19 kg

DRUGS (1)
  1. DEPAKINE CHRONO [Suspect]
     Active Substance: VALPROATE SODIUM
     Indication: MATERNAL EXPOSURE TIMING UNSPECIFIED
     Route: 064

REACTIONS (8)
  - Mental retardation [Unknown]
  - Dysmorphism [Unknown]
  - Congenital foot malformation [Unknown]
  - Speech disorder [Unknown]
  - Foetal exposure during pregnancy [Unknown]
  - Microencephaly [Unknown]
  - Joint hyperextension [Unknown]
  - Foetal anticonvulsant syndrome [Unknown]

NARRATIVE: CASE EVENT DATE: 20080811
